FAERS Safety Report 9553052 (Version 3)
Quarter: 2013Q4

REPORT INFORMATION
  Report Type: Report from Study
  Country: KR (occurrence: KR)
  Receive Date: 20130925
  Receipt Date: 20131202
  Transmission Date: 20140711
  Serious: Yes (Other)
  Sender: FDA-Public Use
  Company Number: PHHY2013KR103392

PATIENT
  Age: 71 Year
  Sex: Female

DRUGS (6)
  1. AMN107 [Suspect]
     Indication: CHRONIC MYELOID LEUKAEMIA
     Dosage: 400 MG, PER DAY
     Route: 048
     Dates: start: 20120903, end: 20120918
  2. AMN107 [Suspect]
     Dosage: 800 MG, PER DAY
     Route: 048
     Dates: start: 20120919, end: 20121003
  3. AMN107 [Suspect]
     Dosage: 400 MG, PER DAY
     Route: 048
     Dates: start: 20121004, end: 20121221
  4. AMN107 [Suspect]
     Dosage: 200 MG, PER DAY
     Route: 048
     Dates: start: 20121222, end: 20130103
  5. PREDNISOLONE [Concomitant]
     Indication: RASH
     Dosage: 20 MG
     Route: 048
     Dates: start: 20121004, end: 20121010
  6. ALBIS [Concomitant]
     Indication: GASTRITIS
     Dosage: 3 DF
     Route: 048
     Dates: start: 20121004, end: 20121010

REACTIONS (1)
  - Thrombocytopenia [Not Recovered/Not Resolved]
